FAERS Safety Report 8347621-1 (Version None)
Quarter: 2012Q2

REPORT INFORMATION
  Report Type: 
  Country: None (occurrence: None)
  Receive Date: 20120509
  Receipt Date: 20120425
  Transmission Date: 20120825
  Serious: Yes (Hospitalization, Other)
  Sender: FDA-Public Use
  Company Number: ES-ELI_LILLY_AND_COMPANY-ES201204009494

PATIENT
  Age: 73 Year
  Sex: Female

DRUGS (8)
  1. ZYPREXA [Suspect]
     Dosage: 5MG/UNK
     Route: 048
     Dates: end: 20110606
  2. MIRTAZAPINE [Concomitant]
     Indication: DEPRESSION
     Dosage: 15MG/DAILY
     Route: 048
     Dates: start: 20101101, end: 20110606
  3. NATECAL D [Concomitant]
  4. VENLAFAXINE [Concomitant]
     Indication: DEPRESSION
     Dosage: 300MG/ DAILY
     Dates: start: 20081101, end: 20110606
  5. DISTRANEURIN [Concomitant]
     Dosage: 30 TABLETS
     Dates: start: 20110607, end: 20110607
  6. WARFARIN SODIUM [Concomitant]
     Dosage: 5MG/ DAILY
     Route: 048
     Dates: start: 20110301, end: 20110606
  7. NOCTAMID [Concomitant]
     Indication: DEPRESSION
     Dosage: 2MG/ DAILY
     Route: 048
     Dates: start: 20081201, end: 20110606
  8. SIMVASTATIN [Concomitant]

REACTIONS (7)
  - DEPRESSED LEVEL OF CONSCIOUSNESS [None]
  - AGITATION [None]
  - DRUG SCREEN POSITIVE [None]
  - REPETITIVE SPEECH [None]
  - DRUG INTERACTION [None]
  - DISORIENTATION [None]
  - PNEUMONIA ASPIRATION [None]
